FAERS Safety Report 5276051-4 (Version None)
Quarter: 2007Q1

REPORT INFORMATION
  Report Type: 
  Country: None (occurrence: None)
  Receive Date: 20061213
  Receipt Date: 20050915
  Transmission Date: 20070707
  Serious: Yes (Hospitalization)
  Sender: FDA-Public Use
  Company Number: 2005UW13809

PATIENT
  Age: 40 Year
  Sex: Female

DRUGS (4)
  1. SEROQUEL [Suspect]
  2. EFFEXOR [Concomitant]
  3. TOPAMAX [Concomitant]
  4. SYNTHROID [Concomitant]

REACTIONS (2)
  - CONVULSION [None]
  - MUSCULAR WEAKNESS [None]
